FAERS Safety Report 11273330 (Version 1)
Quarter: 2015Q3

REPORT INFORMATION
  Report Type: Spontaneous
  Country: US (occurrence: US)
  Receive Date: 20150715
  Receipt Date: 20150715
  Transmission Date: 20151125
  Serious: No
  Sender: FDA-Public Use
  Company Number: US-ELI_LILLY_AND_COMPANY-US201506007391

PATIENT
  Age: 41 Year
  Sex: Female
  Weight: 73 kg

DRUGS (5)
  1. LYRICA [Suspect]
     Active Substance: PREGABALIN
     Indication: NEUROPATHY PERIPHERAL
     Dosage: 100 MG, QD
     Route: 065
  2. CYMBALTA [Suspect]
     Active Substance: DULOXETINE HYDROCHLORIDE
     Indication: NEUROPATHY PERIPHERAL
     Dosage: 10 MG, UNKNOWN
     Route: 048
  3. LYRICA [Suspect]
     Active Substance: PREGABALIN
     Dosage: 300 MG, QD
     Route: 065
  4. LYRICA [Suspect]
     Active Substance: PREGABALIN
     Dosage: 200 MG, QD
     Route: 065
  5. ALEVE [Concomitant]
     Active Substance: NAPROXEN SODIUM
     Indication: NEURALGIA
     Dosage: UNK, UNKNOWN
     Route: 065

REACTIONS (7)
  - Feeling abnormal [Recovered/Resolved]
  - Intentional product misuse [Recovered/Resolved]
  - Headache [Recovered/Resolved]
  - Somnolence [Unknown]
  - Drug withdrawal syndrome [Recovered/Resolved]
  - Neuralgia [Recovering/Resolving]
  - Nausea [Recovered/Resolved]
